FAERS Safety Report 4444351-3 (Version None)
Quarter: 2004Q3

REPORT INFORMATION
  Report Type: 
  Country: None (occurrence: None)
  Receive Date: 20040730
  Receipt Date: 20030723
  Transmission Date: 20050211
  Serious: No
  Sender: FDA-Public Use
  Company Number: 04H-163-0247746-00

PATIENT

DRUGS (1)
  1. ULTANE [Suspect]
     Dates: start: 20030601

REACTIONS (1)
  - CONVULSION [None]
